FAERS Safety Report 7001944-7 (Version None)
Quarter: 2010Q3

REPORT INFORMATION
  Report Type: 
  Country: None (occurrence: None)
  Receive Date: 20100920
  Receipt Date: 20100915
  Transmission Date: 20110219
  Serious: Yes (Life-Threatening, Hospitalization, Disabling, Other)
  Sender: FDA-Public Use
  Company Number: A0871172A

PATIENT
  Age: 70 Year
  Sex: Male
  Weight: 94.3 kg

DRUGS (14)
  1. ACYCLOVIR [Suspect]
     Indication: URINARY TRACT INFECTION
     Route: 042
     Dates: start: 20100418, end: 20100421
  2. STUDY MEDICATION [Suspect]
     Indication: GLIOBLASTOMA MULTIFORME
     Dosage: .6UG MONTHLY
     Route: 023
     Dates: start: 20090429
  3. GM-CSF [Suspect]
     Indication: GLIOBLASTOMA MULTIFORME
     Dosage: .35UG MONTHLY
     Route: 023
     Dates: start: 20090429
  4. TEMODAR [Suspect]
     Indication: GLIOBLASTOMA MULTIFORME
     Dosage: 420MG CYCLIC
     Dates: start: 20090606
  5. ACIPHEX [Concomitant]
     Dates: start: 20090212
  6. AVODART [Concomitant]
     Dates: start: 20091111
  7. DEXAMETHASONE [Concomitant]
     Dates: start: 20090330
  8. ENALAPRIL [Concomitant]
     Dates: start: 20070216
  9. TAMSULOSIN HYDROCHLORIDE [Concomitant]
     Dates: start: 20070226
  10. KEPPRA [Concomitant]
     Dates: start: 20090714
  11. PROZAC [Concomitant]
     Dates: start: 20070226
  12. VERAPAMIL [Concomitant]
     Dates: start: 20070226
  13. ZOFRAN [Concomitant]
     Dates: start: 20090312
  14. LAMOTRIGINE [Concomitant]
     Dates: start: 20100329

REACTIONS (8)
  - HYPERREFLEXIA [None]
  - HYPOTHYROIDISM [None]
  - MENINGITIS [None]
  - MENTAL STATUS CHANGES [None]
  - MUSCULOSKELETAL STIFFNESS [None]
  - PYREXIA [None]
  - RENAL FAILURE ACUTE [None]
  - UNRESPONSIVE TO STIMULI [None]
